FAERS Safety Report 5632948-4 (Version None)
Quarter: 2008Q1

REPORT INFORMATION
  Report Type: 
  Country: None (occurrence: None)
  Receive Date: 20080221
  Receipt Date: 20080214
  Transmission Date: 20080703
  Serious: Yes (Other)
  Sender: FDA-Public Use
  Company Number: PHMT2008CA00527

PATIENT

DRUGS (3)
  1. RISPERIDONE [Concomitant]
     Dosage: 62.5 MG IM Q 2 WEEKS
     Route: 030
  2. OLANZAPINE [Concomitant]
     Dosage: 25 MG DAILY
  3. CARBAMAZEPINE [Suspect]
     Dosage: 400 MG DAILY

REACTIONS (6)
  - ANKLE ARTHROPLASTY [None]
  - DELUSION OF GRANDEUR [None]
  - HALLUCINATION, AUDITORY [None]
  - HALLUCINATIONS, MIXED [None]
  - SCAR [None]
  - SUICIDAL BEHAVIOUR [None]
